FAERS Safety Report 24028550 (Version 1)
Quarter: 2024Q2

REPORT INFORMATION
  Report Type: Spontaneous
  Country: US (occurrence: US)
  Receive Date: 20240628
  Receipt Date: 20240628
  Transmission Date: 20240716
  Serious: No
  Sender: FDA-Public Use
  Company Number: US-BRISTOL-MYERS SQUIBB COMPANY-2024-103859

PATIENT
  Age: 48 Year
  Sex: Male
  Weight: 73.94 kg

DRUGS (1)
  1. LENALIDOMIDE [Suspect]
     Active Substance: LENALIDOMIDE
     Indication: Adult T-cell lymphoma/leukaemia
     Route: 048
     Dates: start: 20240514

REACTIONS (1)
  - Off label use [Unknown]
